FAERS Safety Report 12905756 (Version 2)
Quarter: 2016Q4

REPORT INFORMATION
  Report Type: Report from Study
  Country: US (occurrence: US)
  Receive Date: 20161103
  Receipt Date: 20161123
  Transmission Date: 20170207
  Serious: Yes (Other)
  Sender: FDA-Public Use
  Company Number: US-ACCORD-045288

PATIENT
  Age: 7 Decade
  Sex: Male

DRUGS (4)
  1. VALSARTAN. [Concomitant]
     Active Substance: VALSARTAN
  2. OMEPRAZOLE. [Concomitant]
     Active Substance: OMEPRAZOLE
  3. SIMVASTATIN. [Suspect]
     Active Substance: SIMVASTATIN
     Indication: LIPIDS ABNORMAL
  4. ATORVASTATIN [Suspect]
     Active Substance: ATORVASTATIN
     Indication: STENOSIS

REACTIONS (8)
  - Irritability [Recovering/Resolving]
  - Aggression [Recovering/Resolving]
  - Transient global amnesia [Unknown]
  - Dizziness [Unknown]
  - Personality change [Recovering/Resolving]
  - Affect lability [Recovering/Resolving]
  - Cognitive disorder [Unknown]
  - Rash [Recovered/Resolved]
